FAERS Safety Report 8948759 (Version 2)
Quarter: 2012Q4

REPORT INFORMATION
  Report Type: 
  Country: JP (occurrence: JP)
  Receive Date: 20121206
  Receipt Date: 20121214
  Transmission Date: 20130627
  Serious: Yes (Other)
  Sender: FDA-Public Use
  Company Number: JP-JNJFOC-20121200550

PATIENT
  Age: 63 Year
  Sex: Female

DRUGS (3)
  1. REMINYL [Suspect]
     Indication: PRODUCT USED FOR UNKNOWN INDICATION
     Route: 048
     Dates: end: 20121123
  2. MAGMITT [Concomitant]
     Route: 048
  3. NELUROLEN [Concomitant]
     Route: 048

REACTIONS (1)
  - Rash [Recovering/Resolving]
